FAERS Safety Report 16729920 (Version 1)
Quarter: 2019Q3

REPORT INFORMATION
  Report Type: Spontaneous
  Country: US (occurrence: US)
  Receive Date: 20190706
  Receipt Date: 20190706
  Transmission Date: 20191005
  Serious: No
  Sender: FDA-Public Use
  Company Number: None

PATIENT
  Age: 61 Year
  Sex: Female

DRUGS (1)
  1. ERLOTINIB 150MG TAB [Suspect]
     Active Substance: ERLOTINIB
     Route: 048
     Dates: start: 20170215

REACTIONS (4)
  - Abdominal distension [None]
  - Diarrhoea [None]
  - Product substitution issue [None]
  - Nausea [None]

NARRATIVE: CASE EVENT DATE: 20190706
